FAERS Safety Report 6026420-X (Version None)
Quarter: 2009Q1

REPORT INFORMATION
  Report Type: 
  Country: None (occurrence: None)
  Receive Date: 20090102
  Receipt Date: 20081224
  Transmission Date: 20090719
  Serious: Yes (Hospitalization)
  Sender: FDA-Public Use
  Company Number: FR-ROCHE-605161

PATIENT
  Sex: Male

DRUGS (12)
  1. ROCEPHIN [Suspect]
     Route: 065
  2. AVODART [Suspect]
     Route: 048
  3. PERMIXON [Suspect]
     Indication: MICTURITION DISORDER
     Route: 048
  4. NOVONORM [Suspect]
     Route: 048
  5. MONO-TILDIEM LP [Suspect]
     Route: 048
  6. HEMIGOXINE NATIVELLE [Suspect]
     Route: 048
  7. CARDENSIEL [Suspect]
     Route: 048
     Dates: end: 20080327
  8. LASILIX [Suspect]
     Route: 048
     Dates: end: 20080327
  9. LERCAN [Suspect]
     Indication: ESSENTIAL HYPERTENSION
     Route: 048
     Dates: end: 20080327
  10. PREVISCAN [Suspect]
     Indication: PULMONARY EMBOLISM
     Dosage: 0.75 DOSES PER DAY
     Route: 048
  11. AUGMENTIN '125' [Suspect]
     Route: 065
     Dates: start: 20080201
  12. TAVANIC [Suspect]
     Route: 065
     Dates: start: 20080201

REACTIONS (1)
  - ECZEMA [None]
